FAERS Safety Report 23743506 (Version 1)
Quarter: 2024Q2

REPORT INFORMATION
  Report Type: Spontaneous
  Country: US (occurrence: None)
  Receive Date: 20240413
  Receipt Date: 20240413
  Transmission Date: 20240716
  Serious: No
  Sender: FDA-Public Use
  Company Number: None

PATIENT
  Age: 37 Year
  Sex: Female
  Weight: 133.65 kg

DRUGS (5)
  1. CONTRAVE [Suspect]
     Active Substance: BUPROPION HYDROCHLORIDE\NALTREXONE HYDROCHLORIDE
     Indication: Weight decreased
     Dosage: OTHER QUANTITY : 1 TABLET(S);?FREQUENCY : TWICE A DAY;?
     Route: 048
     Dates: start: 20240409, end: 20240411
  2. GABAPENTIN [Concomitant]
     Active Substance: GABAPENTIN
  3. Myo+d-chiro inositol [Concomitant]
  4. loratadi [Concomitant]
  5. headache meds [Concomitant]

REACTIONS (6)
  - Palpitations [None]
  - Feeling jittery [None]
  - Anxiety [None]
  - Nausea [None]
  - Migraine [None]
  - Vomiting [None]

NARRATIVE: CASE EVENT DATE: 20240409
